FAERS Safety Report 5046919-2 (Version None)
Quarter: 2006Q2

REPORT INFORMATION
  Report Type: 
  Country: None (occurrence: None)
  Receive Date: 20060630
  Receipt Date: 20060623
  Transmission Date: 20061013
  Serious: Yes (Disabling)
  Sender: FDA-Public Use
  Company Number: FRWYE795526JUN06

PATIENT
  Age: 73 Year
  Sex: Female

DRUGS (2)
  1. EFFEXOR [Suspect]
     Dosage: 50 MG 2X PER 1 DAY
     Route: 048
     Dates: start: 20050101
  2. LITHIUM CARBONATE [Concomitant]

REACTIONS (3)
  - BACK PAIN [None]
  - DIFFICULTY IN WALKING [None]
  - SPINAL FRACTURE [None]
